FAERS Safety Report 6758529-7 (Version None)
Quarter: 2010Q2

REPORT INFORMATION
  Report Type: 
  Country: None (occurrence: None)
  Receive Date: 20100607
  Receipt Date: 20100602
  Transmission Date: 20101027
  Serious: Yes (Hospitalization)
  Sender: FDA-Public Use
  Company Number: B0657764A

PATIENT
  Sex: Female

DRUGS (8)
  1. ARIXTRA [Suspect]
     Indication: DRUG USE FOR UNKNOWN INDICATION
     Dosage: 7.5MG PER DAY
     Route: 058
     Dates: start: 20100218, end: 20100306
  2. DEROXAT [Concomitant]
     Route: 048
  3. DEPAMIDE [Concomitant]
     Route: 065
  4. TAHOR [Concomitant]
     Route: 065
  5. ACEBUTOLOL [Concomitant]
     Route: 065
  6. ALDALIX [Concomitant]
     Route: 065
  7. LASIX [Concomitant]
     Route: 065
  8. DIFFU K [Concomitant]
     Route: 065

REACTIONS (4)
  - GASTROINTESTINAL HAEMORRHAGE [None]
  - INCORRECT DRUG ADMINISTRATION DURATION [None]
  - MELAENA [None]
  - VOMITING [None]
